FAERS Safety Report 6588363-2 (Version None)
Quarter: 2010Q1

REPORT INFORMATION
  Report Type: 
  Country: None (occurrence: None)
  Receive Date: 20100218
  Receipt Date: 20100209
  Transmission Date: 20100710
  Serious: Yes (Other)
  Sender: FDA-Public Use
  Company Number: US-ASTRAZENECA-2009UW20857

PATIENT
  Age: 71 Year
  Sex: Female
  Weight: 67.1 kg

DRUGS (3)
  1. FASLODEX [Suspect]
     Indication: BREAST CANCER METASTATIC
     Dosage: 2ND DOSE WAS 1/2 OF AN INJECTION; CONSIDERING FULL DOSE FOR 3RD DOSE
     Route: 030
     Dates: start: 20090528
  2. ZOLOFT [Concomitant]
  3. LEVOTHYROXINE SODIUM [Concomitant]

REACTIONS (15)
  - AMNESIA [None]
  - DECREASED APPETITE [None]
  - DYSKINESIA [None]
  - HOT FLUSH [None]
  - HYPERHIDROSIS [None]
  - INFLUENZA LIKE ILLNESS [None]
  - INJECTION SITE PAIN [None]
  - MEMORY IMPAIRMENT [None]
  - MUSCLE SPASMS [None]
  - NAUSEA [None]
  - OROPHARYNGEAL PAIN [None]
  - PAIN IN EXTREMITY [None]
  - PARATHYROID DISORDER [None]
  - SOMNOLENCE [None]
  - WEIGHT DECREASED [None]
